FAERS Safety Report 9073995 (Version 1)
Quarter: 2013Q1

REPORT INFORMATION
  Report Type: Report from Study
  Country: US (occurrence: US)
  Receive Date: 20130129
  Receipt Date: 20130129
  Transmission Date: 20140127
  Serious: Yes (Other)
  Sender: FDA-Public Use
  Company Number: US-ABBOTT-12P-163-0918172-00

PATIENT
  Sex: Female
  Weight: 118.04 kg

DRUGS (3)
  1. HUMIRA 40 MG/0.8 ML PEN [Suspect]
     Indication: CROHN^S DISEASE
     Dates: start: 200903, end: 20101105
  2. HUMIRA 40 MG/0.8 ML PEN [Suspect]
     Route: 058
     Dates: start: 201201
  3. IMURAN [Suspect]
     Indication: CROHN^S DISEASE
     Dates: start: 200903, end: 201011

REACTIONS (3)
  - Histoplasmosis disseminated [Recovered/Resolved]
  - Crohn^s disease [Recovered/Resolved]
  - Crohn^s disease [Recovered/Resolved]
